FAERS Safety Report 9737517 (Version 2)
Quarter: 2014Q1

REPORT INFORMATION
  Report Type: Spontaneous
  Country: US (occurrence: US)
  Receive Date: 20131207
  Receipt Date: 20140102
  Transmission Date: 20141002
  Serious: No
  Sender: FDA-Public Use
  Company Number: US-009507513-1312USA002110

PATIENT
  Sex: 0

DRUGS (2)
  1. FOLLISTIM AQ [Suspect]
  2. PUREGON PEN [Suspect]
     Indication: PRODUCT USED FOR UNKNOWN INDICATION

REACTIONS (2)
  - Device issue [Unknown]
  - Drug dose omission [Unknown]
